FAERS Safety Report 4453458-6 (Version None)
Quarter: 2004Q3

REPORT INFORMATION
  Report Type: 
  Country: None (occurrence: None)
  Receive Date: 20040920
  Receipt Date: 20040908
  Transmission Date: 20050211
  Serious: Yes (Death)
  Sender: FDA-Public Use
  Company Number: JP-JNJFOC-20031202460

PATIENT
  Sex: Female

DRUGS (8)
  1. FENTANYL [Suspect]
     Route: 062
  2. FENTANYL [Suspect]
     Indication: CANCER PAIN
     Route: 062
  3. METOCLOPRAMIDE [Concomitant]
     Route: 042
  4. FAMOTIDINE [Concomitant]
     Indication: GASTRIC ULCER
     Route: 041
  5. BETAMETHASONE SODIUM PHOSPHATE [Concomitant]
     Indication: GASTRIC CANCER
     Route: 041
  6. DICLOFENAC SODIUM [Concomitant]
     Route: 054
  7. DICLOFENAC SODIUM [Concomitant]
     Indication: CANCER PAIN
     Route: 054
  8. HYDROXYZINE HYDROCHLORIDE [Concomitant]
     Indication: CANCER PAIN
     Route: 042

REACTIONS (1)
  - MALIGNANT NEOPLASM PROGRESSION [None]
